FAERS Safety Report 6871835-0 (Version None)
Quarter: 2010Q3

REPORT INFORMATION
  Report Type: 
  Country: None (occurrence: None)
  Receive Date: 20100723
  Receipt Date: 20100716
  Transmission Date: 20110219
  Serious: Yes (Hospitalization)
  Sender: FDA-Public Use
  Company Number: JP-JNJFOC-20100704351

PATIENT
  Age: 85 Year
  Sex: Female

DRUGS (1)
  1. DUROTEP MT [Suspect]
     Indication: ANALGESIC THERAPY
     Route: 062

REACTIONS (5)
  - DEPRESSED LEVEL OF CONSCIOUSNESS [None]
  - DYSPNOEA [None]
  - RESPIRATORY ARREST [None]
  - SNORING [None]
  - UNRESPONSIVE TO STIMULI [None]
